FAERS Safety Report 19887341 (Version 1)
Quarter: 2021Q3

REPORT INFORMATION
  Report Type: Spontaneous
  Country: GB (occurrence: GB)
  Receive Date: 20210927
  Receipt Date: 20210927
  Transmission Date: 20211014
  Serious: Yes (Death, Hospitalization)
  Sender: FDA-Public Use
  Company Number: GB-MYLANLABS-2021M1066834

PATIENT
  Age: 67 Year
  Sex: Female

DRUGS (2)
  1. VORICONAZOLE. [Suspect]
     Active Substance: VORICONAZOLE
     Indication: DISSEMINATED ASPERGILLOSIS
     Dosage: UNK
     Route: 065
  2. AMBISOME [Suspect]
     Active Substance: AMPHOTERICIN B
     Indication: DISSEMINATED ASPERGILLOSIS
     Dosage: UNK
     Route: 065

REACTIONS (1)
  - Drug ineffective [Fatal]
